FAERS Safety Report 10501674 (Version 5)
Quarter: 2015Q2

REPORT INFORMATION
  Report Type: Report from Study
  Country: US (occurrence: US)
  Receive Date: 20141007
  Receipt Date: 20150605
  Transmission Date: 20150821
  Serious: Yes (Hospitalization)
  Sender: FDA-Public Use
  Company Number: US-ACTELION-A-US2014-100415

PATIENT
  Age: 58 Year
  Sex: Female

DRUGS (20)
  1. LASIX [Concomitant]
     Active Substance: FUROSEMIDE
     Dosage: 80 MG, QD
  2. IPRATROPIUM BROMIDE. [Concomitant]
     Active Substance: IPRATROPIUM BROMIDE
     Dosage: 0.02 %, PRN
     Route: 055
  3. TRAMADOL HCL [Concomitant]
     Active Substance: TRAMADOL HYDROCHLORIDE
     Dosage: 50 MG, QID PRN
  4. ZAROXOLYN [Concomitant]
     Active Substance: METOLAZONE
     Dosage: 5 MG, TID
  5. NYSTATIN. [Concomitant]
     Active Substance: NYSTATIN
     Dosage: UNK
  6. CELEBREX [Concomitant]
     Active Substance: CELECOXIB
     Dosage: 400 MG, QID
     Route: 048
  7. TRACLEER [Suspect]
     Active Substance: BOSENTAN\BOSENTAN MONOHYDRATE
     Dosage: UNK
     Route: 048
     Dates: start: 200809
  8. CARDIZEM [Concomitant]
     Active Substance: DILTIAZEM HYDROCHLORIDE
     Dosage: 240 MG, QID
     Route: 048
  9. KCL [Concomitant]
     Active Substance: POTASSIUM CHLORIDE
     Dosage: 10 MEQ, UNK
  10. ALBUTEROL W/IPRATROPIUM [Concomitant]
     Active Substance: ALBUTEROL\IPRATROPIUM
     Dosage: 500 UNK, Q4HRS
  11. CEFUROXIME AXETIL. [Concomitant]
     Active Substance: CEFUROXIME AXETIL
     Dosage: 250 MG, BID
     Route: 048
  12. DILANTIN [Concomitant]
     Active Substance: PHENYTOIN
     Dosage: 30 MG, QID
     Route: 048
  13. TRACLEER [Suspect]
     Active Substance: BOSENTAN\BOSENTAN MONOHYDRATE
     Indication: PULMONARY ARTERIAL HYPERTENSION
     Dosage: 125 MG, BID
     Route: 048
  14. CARDIZEM [Concomitant]
     Active Substance: DILTIAZEM HYDROCHLORIDE
     Dosage: 120 MG, QID
     Route: 048
  15. SPIRIVA [Concomitant]
     Active Substance: TIOTROPIUM BROMIDE MONOHYDRATE
     Dosage: 18 MCG, QID
  16. CARDIZEM CD [Concomitant]
     Active Substance: DILTIAZEM HYDROCHLORIDE
     Dosage: 120 MG, QID
     Route: 048
  17. ENBREL [Concomitant]
     Active Substance: ETANERCEPT
     Dosage: 500 MG/ML, WKLY
     Route: 058
  18. ADVAIR HFA [Concomitant]
     Active Substance: FLUTICASONE PROPIONATE\SALMETEROL XINAFOATE
     Dosage: UNK, I PUFF Q12HRS
     Route: 055
  19. BACTRIM [Concomitant]
     Active Substance: SULFAMETHOXAZOLE\TRIMETHOPRIM
     Dosage: 400-80 MG, I PO BID
     Route: 048
  20. ALBUTEROL. [Concomitant]
     Active Substance: ALBUTEROL
     Dosage: 25 MG/3ML NEBULIZER, PRN
     Route: 055

REACTIONS (16)
  - Blood potassium decreased [Recovering/Resolving]
  - Hypotension [Unknown]
  - Atrial fibrillation [Recovered/Resolved]
  - Fall [Unknown]
  - White blood cell count increased [Unknown]
  - Atrial flutter [Recovered/Resolved]
  - Dyspnoea [Unknown]
  - Paracentesis [Unknown]
  - Dizziness [Recovering/Resolving]
  - Fluid retention [Unknown]
  - Chest pain [Unknown]
  - Arthralgia [Unknown]
  - Heart rate increased [Unknown]
  - Weight decreased [Unknown]
  - Oedema peripheral [Unknown]
  - Urinary tract infection [Unknown]

NARRATIVE: CASE EVENT DATE: 20140830
